FAERS Safety Report 18970724 (Version 1)
Quarter: 2021Q1

REPORT INFORMATION
  Report Type: Spontaneous
  Country: US (occurrence: US)
  Receive Date: 20210305
  Receipt Date: 20210305
  Transmission Date: 20210420
  Serious: Yes (Other)
  Sender: FDA-Public Use
  Company Number: US-ROCHE-2748793

PATIENT
  Sex: Male
  Weight: 104.42 kg

DRUGS (9)
  1. XOLAIR [Suspect]
     Active Substance: OMALIZUMAB
  2. XOLAIR [Suspect]
     Active Substance: OMALIZUMAB
     Indication: ASTHMA
     Route: 058
  3. XOLAIR [Suspect]
     Active Substance: OMALIZUMAB
     Indication: ASTHMA
     Dosage: XOLAIR SD PFS 150 MG/ML
     Route: 058
     Dates: start: 20161101
  4. XOLAIR [Suspect]
     Active Substance: OMALIZUMAB
  5. XOLAIR [Suspect]
     Active Substance: OMALIZUMAB
  6. XOLAIR [Suspect]
     Active Substance: OMALIZUMAB
     Dosage: XOLAIR SD PFS 75 MG/0.5ML
     Route: 058
     Dates: start: 20161101
  7. XOLAIR [Suspect]
     Active Substance: OMALIZUMAB
     Route: 058
  8. HUMIRA [Concomitant]
     Active Substance: ADALIMUMAB
     Indication: COLITIS ULCERATIVE
  9. XOLAIR [Suspect]
     Active Substance: OMALIZUMAB

REACTIONS (3)
  - Asthma [Unknown]
  - Colitis ulcerative [Unknown]
  - Malaise [Unknown]

NARRATIVE: CASE EVENT DATE: 2020
